FAERS Safety Report 18360729 (Version 3)
Quarter: 2020Q4

REPORT INFORMATION
  Report Type: Report from Study
  Country: US (occurrence: US)
  Receive Date: 20201008
  Receipt Date: 20201128
  Transmission Date: 20210114
  Serious: Yes (Hospitalization, Other)
  Sender: FDA-Public Use
  Company Number: NVSC2020US267228

PATIENT
  Age: 85 Year
  Sex: Female

DRUGS (2)
  1. ENTRESTO [Suspect]
     Active Substance: SACUBITRIL\VALSARTAN
     Dosage: 1.5 DF, QD (1 TAB IN THE MORNING AND A HALF TAB IN THE EVENING)
     Route: 065
  2. ENTRESTO [Suspect]
     Active Substance: SACUBITRIL\VALSARTAN
     Indication: PRODUCT USED FOR UNKNOWN INDICATION
     Dosage: 50 MG, BID
     Route: 048
     Dates: start: 202001

REACTIONS (9)
  - Fluid retention [Unknown]
  - Blood potassium increased [Unknown]
  - Fall [Unknown]
  - Heart rate increased [Recovering/Resolving]
  - Dizziness [Unknown]
  - Blood pressure abnormal [Unknown]
  - Nausea [Unknown]
  - Wrong technique in product usage process [Unknown]
  - Atrial fibrillation [Unknown]

NARRATIVE: CASE EVENT DATE: 202001
